FAERS Safety Report 8427939-4 (Version None)
Quarter: 2012Q2

REPORT INFORMATION
  Report Type: 
  Country: None (occurrence: None)
  Receive Date: 20120611
  Receipt Date: 20120528
  Transmission Date: 20120825
  Serious: Yes (Hospitalization, Other)
  Sender: FDA-Public Use
  Company Number: US-MYLANLABS-2009AC000248

PATIENT
  Age: 64 Year
  Sex: Male
  Weight: 80.79 kg

DRUGS (56)
  1. DIGOXIN [Suspect]
     Indication: ARRHYTHMIA
     Route: 048
     Dates: start: 19880601, end: 20090406
  2. ASCORBIC ACID [Concomitant]
  3. NIASPAN [Concomitant]
  4. LIPITOR [Concomitant]
  5. VIOXX [Concomitant]
  6. ATENOLOL [Concomitant]
  7. CELEXA [Concomitant]
  8. SENOKOT [Concomitant]
  9. ASPIRIN [Concomitant]
  10. ETODOLAC [Concomitant]
  11. ASPIRIN [Concomitant]
  12. CALCIUM [Concomitant]
  13. HEPARIN [Concomitant]
  14. CALCIUM [Concomitant]
  15. NEURONTIN [Concomitant]
  16. COENZYME Q10 [Concomitant]
  17. FISH OIL [Concomitant]
  18. CARVEDILOL [Concomitant]
  19. RESTORIL [Concomitant]
  20. COZAAR [Concomitant]
  21. ANTIINFLAMMATORY AGENTS, NON-STEROIDS [Concomitant]
  22. MULTI-VITAMINS [Concomitant]
  23. FOSAMAX [Concomitant]
  24. MAGNESIUM [Concomitant]
  25. COREG [Concomitant]
  26. FOLIC ACID [Concomitant]
  27. ZOCOR [Concomitant]
  28. VITAMIN B6 [Concomitant]
  29. VALTREX [Concomitant]
  30. ALENDRONATE SODIUM [Concomitant]
  31. FUROSEMIDE [Concomitant]
  32. MEVACOR [Concomitant]
  33. VITAMIN E [Concomitant]
  34. CARDOXONE R [Concomitant]
  35. VITAMIN D [Concomitant]
  36. CITALOPRAM [Concomitant]
  37. LISINOPRIL [Concomitant]
  38. ACETAMINOPHEN [Concomitant]
  39. PLAVIX [Concomitant]
  40. ALENDRONATE SODIUM [Concomitant]
  41. SOMA [Concomitant]
  42. IODINE [Concomitant]
  43. PROTONIX [Concomitant]
  44. FOSAMAX [Concomitant]
  45. PANTOPRAZOLE [Concomitant]
  46. CELEXA [Concomitant]
  47. SIMVASTATIN [Concomitant]
  48. OMEGA /00661201/ [Concomitant]
  49. VITAMIN B-12 [Concomitant]
  50. COUMADIN [Concomitant]
  51. CELEBREX [Concomitant]
  52. BIAXIN [Concomitant]
  53. CYCLOBENZAPRINE [Concomitant]
  54. FLEXERIL [Concomitant]
  55. PREDNISONE TAB [Concomitant]
  56. CARISOPRODOL [Concomitant]

REACTIONS (124)
  - DIZZINESS [None]
  - BRADYCARDIA [None]
  - ILL-DEFINED DISORDER [None]
  - CHEST PAIN [None]
  - TRANSIENT ISCHAEMIC ATTACK [None]
  - CEREBRAL SMALL VESSEL ISCHAEMIC DISEASE [None]
  - GAIT DISTURBANCE [None]
  - OEDEMA [None]
  - DUODENITIS [None]
  - ABDOMINAL PAIN UPPER [None]
  - GALLBLADDER ENLARGEMENT [None]
  - ELECTROCARDIOGRAM ST SEGMENT DEPRESSION [None]
  - SYSTOLIC DYSFUNCTION [None]
  - ECONOMIC PROBLEM [None]
  - OSTEOPOROSIS [None]
  - PROTEINURIA [None]
  - VOMITING [None]
  - GASTROINTESTINAL HAEMORRHAGE [None]
  - LUNG INFILTRATION [None]
  - CELLULITIS [None]
  - ERYTHEMA [None]
  - BONE PAIN [None]
  - PAIN IN EXTREMITY [None]
  - HYPERTENSIVE HEART DISEASE [None]
  - PALPITATIONS [None]
  - FLANK PAIN [None]
  - ESSENTIAL HYPERTENSION [None]
  - INTERVERTEBRAL DISC PROTRUSION [None]
  - GALLBLADDER OBSTRUCTION [None]
  - ABDOMINAL DISTENSION [None]
  - DEHYDRATION [None]
  - LUNG NEOPLASM [None]
  - SUPRAVENTRICULAR EXTRASYSTOLES [None]
  - BLOOD PRESSURE DECREASED [None]
  - ANAEMIA [None]
  - HYPONATRAEMIA [None]
  - HAEMATURIA [None]
  - CHOLECYSTECTOMY [None]
  - CORONARY ARTERY BYPASS [None]
  - ATRIOVENTRICULAR BLOCK COMPLETE [None]
  - CARDIAC VALVE DISEASE [None]
  - ASTHENIA [None]
  - PROCEDURAL COMPLICATION [None]
  - MELAENA [None]
  - NECK PAIN [None]
  - HEADACHE [None]
  - DISORIENTATION [None]
  - ARTERIOSCLEROSIS [None]
  - OSTEOPENIA [None]
  - DILATATION VENTRICULAR [None]
  - LEFT VENTRICULAR DYSFUNCTION [None]
  - JOINT RANGE OF MOTION DECREASED [None]
  - PULMONARY OEDEMA [None]
  - NUCLEAR MAGNETIC RESONANCE IMAGING ABNORMAL [None]
  - INJURY [None]
  - RENAL FAILURE [None]
  - CARDIAC FAILURE CONGESTIVE [None]
  - NAUSEA [None]
  - CHOLELITHIASIS [None]
  - CEREBROVASCULAR ACCIDENT [None]
  - MUSCULAR WEAKNESS [None]
  - PARAESTHESIA [None]
  - NERVE COMPRESSION [None]
  - SHOULDER ARTHROPLASTY [None]
  - RHEUMATOID ARTHRITIS [None]
  - ULCER HAEMORRHAGE [None]
  - AMNESIA [None]
  - CEREBRAL ISCHAEMIA [None]
  - ARRHYTHMIA [None]
  - CHOLECYSTITIS [None]
  - PEPTIC ULCER [None]
  - PYREXIA [None]
  - HYPOAESTHESIA [None]
  - CARDIAC MURMUR [None]
  - ABDOMINAL TENDERNESS [None]
  - CARDIAC DISORDER [None]
  - PAIN [None]
  - VENTRICULAR HYPOKINESIA [None]
  - CORONARY ARTERY OCCLUSION [None]
  - DYSARTHRIA [None]
  - ROTATOR CUFF REPAIR [None]
  - SPINAL OSTEOARTHRITIS [None]
  - DYSPNOEA [None]
  - WHEEZING [None]
  - CARDIOMEGALY [None]
  - HYPOREFLEXIA [None]
  - ELECTROCARDIOGRAM ABNORMAL [None]
  - DIVERTICULUM [None]
  - IRRITABILITY [None]
  - ANHEDONIA [None]
  - EMOTIONAL DISTRESS [None]
  - MUSCULOSKELETAL CHEST PAIN [None]
  - POLLAKIURIA [None]
  - RENAL FAILURE ACUTE [None]
  - MYOCARDIAL INFARCTION [None]
  - ATELECTASIS [None]
  - LYMPHANGITIS [None]
  - HYPERTENSION [None]
  - MASS [None]
  - BACK PAIN [None]
  - INTERVERTEBRAL DISC DEGENERATION [None]
  - MUSCULOSKELETAL PAIN [None]
  - HYPERLIPIDAEMIA [None]
  - RADICULOPATHY [None]
  - HYPOTENSION [None]
  - FLATULENCE [None]
  - JOINT DISLOCATION [None]
  - VENTRICULAR EXTRASYSTOLES [None]
  - ANXIETY [None]
  - TOXICITY TO VARIOUS AGENTS [None]
  - ISCHAEMIC CARDIOMYOPATHY [None]
  - ABDOMINAL PAIN [None]
  - DIARRHOEA [None]
  - ANGINA UNSTABLE [None]
  - CORONARY ARTERY DISEASE [None]
  - SPINAL COLUMN STENOSIS [None]
  - BRADYARRHYTHMIA [None]
  - FATIGUE [None]
  - ARTHRITIS [None]
  - DEPRESSION [None]
  - COUGH [None]
  - RESPIRATORY TRACT INFECTION [None]
  - AZOTAEMIA [None]
  - SCOLIOSIS [None]
